FAERS Safety Report 6997013-2 (Version None)
Quarter: 2010Q3

REPORT INFORMATION
  Report Type: 
  Country: None (occurrence: None)
  Receive Date: 20100918
  Receipt Date: 20090828
  Transmission Date: 20110219
  Serious: Yes (Hospitalization)
  Sender: FDA-Public Use
  Company Number: US-WYE-H10760309

PATIENT
  Sex: Female
  Weight: 56.75 kg

DRUGS (1)
  1. EFFEXOR XR [Suspect]
     Indication: DEPRESSION
     Dosage: UNKNOWN
     Route: 048
     Dates: start: 20070101, end: 20070101

REACTIONS (2)
  - DEHYDRATION [None]
  - DIARRHOEA [None]
